FAERS Safety Report 4781488-3 (Version None)
Quarter: 2005Q3

REPORT INFORMATION
  Report Type: 
  Country: None (occurrence: None)
  Receive Date: 20050928
  Receipt Date: 20050826
  Transmission Date: 20060218
  Serious: Yes (Death)
  Sender: FDA-Public Use
  Company Number: PHBS2005JP12633

PATIENT
  Age: 70 Year
  Sex: Female

DRUGS (3)
  1. LAMISIL [Suspect]
     Indication: ALTERNARIA INFECTION
     Dosage: UNK, UNK
     Route: 048
     Dates: start: 20040708, end: 20040719
  2. ITRACONAZOLE [Suspect]
     Indication: ALTERNARIA INFECTION
     Dosage: 100 MG/D
     Dates: start: 20040720
  3. INSULIN [Concomitant]

REACTIONS (3)
  - CARDIAC FAILURE [None]
  - CONCOMITANT DISEASE PROGRESSION [None]
  - DRUG INEFFECTIVE [None]
